FAERS Safety Report 12761111 (Version 1)
Quarter: 2016Q3

REPORT INFORMATION
  Report Type: Spontaneous
  Country: US (occurrence: US)
  Receive Date: 20160920
  Receipt Date: 20160920
  Transmission Date: 20161109
  Serious: Yes (Other)
  Sender: FDA-Public Use
  Company Number: US-STRIDES ARCOLAB LIMITED-2016SP012662

PATIENT

DRUGS (1)
  1. METRONIDAZOLE. [Suspect]
     Active Substance: METRONIDAZOLE
     Indication: SENSITISATION
     Dosage: CUMULATIVE DOSE OF 52G

REACTIONS (3)
  - Toxic encephalopathy [Recovered/Resolved]
  - Seizure [Recovered/Resolved]
  - Off label use [Unknown]
